FAERS Safety Report 9060977 (Version 4)
Quarter: 2013Q2

REPORT INFORMATION
  Report Type: Spontaneous
  Country: ES (occurrence: ES)
  Receive Date: 20130204
  Receipt Date: 20130502
  Transmission Date: 20140414
  Serious: Yes (Other)
  Sender: FDA-Public Use
  Company Number: ES-AMGEN-ESPSP2013003335

PATIENT
  Age: 59 Year
  Sex: Male
  Weight: 80 kg

DRUGS (11)
  1. ENBREL [Suspect]
     Indication: ANKYLOSING SPONDYLITIS
     Dosage: 25 MG, 2X/WEEK
     Route: 058
     Dates: start: 20121205
  2. SIMVASTATIN [Concomitant]
     Dosage: UNK
     Route: 048
  3. ARTEDIL [Concomitant]
     Dosage: UNK
     Route: 048
  4. LORAZEPAM [Concomitant]
     Dosage: UNK
     Route: 048
  5. PERMIXON [Concomitant]
     Dosage: UNK
     Route: 048
  6. OMEPRAZOL                          /00661201/ [Concomitant]
     Dosage: UNK
     Route: 048
  7. PRITOR                             /01421801/ [Concomitant]
     Dosage: UNK
     Route: 048
  8. ALLOPURINOL [Concomitant]
     Dosage: UNK
     Route: 048
  9. SALAZOPYRIN [Concomitant]
     Dosage: UNK
     Route: 048
  10. TRAMADOL [Concomitant]
     Dosage: UNK
  11. ACETAMINOPHEN [Concomitant]
     Dosage: 300 MG, BID

REACTIONS (8)
  - Haematochezia [Unknown]
  - Intestinal stenosis [Unknown]
  - Polyp [Unknown]
  - Gastrointestinal tract adenoma [Unknown]
  - Dysplasia [Unknown]
  - Anaemia [Not Recovered/Not Resolved]
  - Dizziness [Recovered/Resolved]
  - Malaise [Recovered/Resolved]
